FAERS Safety Report 15155841 (Version 1)
Quarter: 2018Q3

REPORT INFORMATION
  Report Type: Spontaneous
  Country: DE (occurrence: DE)
  Receive Date: 20180717
  Receipt Date: 20180717
  Transmission Date: 20181010
  Serious: Yes (Hospitalization)
  Sender: FDA-Public Use
  Company Number: DE-US WORLDMEDS, LLC-STA_00018338

PATIENT
  Age: 75 Year
  Sex: Male
  Weight: 67 kg

DRUGS (3)
  1. APOMORPHINE HYDROCHLORIDE [Suspect]
     Active Substance: APOMORPHINE HYDROCHLORIDE
     Indication: ON AND OFF PHENOMENON
     Dosage: 30MG
     Dates: start: 20090416
  2. SIMVASTATIN. [Concomitant]
     Active Substance: SIMVASTATIN
     Indication: CEREBRAL INFARCTION
     Dosage: 40 MG/DAY
     Dates: start: 20080702
  3. AGGRENOX RETARD 200 [Concomitant]
     Indication: CEREBRAL INFARCTION
     Dosage: 400 MG/DAY
     Dates: start: 20080702

REACTIONS (5)
  - Lung infection [Recovered/Resolved]
  - Femoral neck fracture [Recovered/Resolved]
  - Hallucination [Not Recovered/Not Resolved]
  - Gait inability [Not Recovered/Not Resolved]
  - Hypertension [Not Recovered/Not Resolved]

NARRATIVE: CASE EVENT DATE: 200907
